FAERS Safety Report 14121320 (Version 1)
Quarter: 2017Q4

REPORT INFORMATION
  Report Type: Spontaneous
  Country: US (occurrence: US)
  Receive Date: 20171024
  Receipt Date: 20171024
  Transmission Date: 20180321
  Serious: No
  Sender: FDA-Public Use
  Company Number: US-MYLANLABS-2017M1057191

PATIENT
  Sex: Female

DRUGS (1)
  1. CLONAZEPAM TABLETS, USP [Suspect]
     Active Substance: CLONAZEPAM
     Indication: PRODUCT USED FOR UNKNOWN INDICATION
     Dosage: 1 MG, BID
     Dates: start: 2008

REACTIONS (9)
  - Dyspnoea [Unknown]
  - Feeling abnormal [Unknown]
  - Withdrawal syndrome [Unknown]
  - Sinus congestion [Unknown]
  - Dizziness [Unknown]
  - Panic attack [Unknown]
  - Abdominal distension [Unknown]
  - Drug screen negative [Unknown]
  - Cough [Unknown]

NARRATIVE: CASE EVENT DATE: 20170830
